FAERS Safety Report 9026531 (Version 1)
Quarter: 2012Q4

REPORT INFORMATION
  Report Type: Spontaneous
  Country: US (occurrence: None)
  Receive Date: 20121214
  Receipt Date: 20121214
  Transmission Date: 20130627
  Serious: No
  Sender: FDA-Public Use
  Company Number: None

PATIENT
  Age: 45 Year
  Sex: Female

DRUGS (1)
  1. COPAXONE 20MG TEVA [Suspect]
     Indication: MULTIPLE SCLEROSIS
     Dosage: 20mg DAILY SQ
     Route: 058
     Dates: start: 200808

REACTIONS (4)
  - Dry mouth [None]
  - Glossodynia [None]
  - Nervous system disorder [None]
  - Tooth disorder [None]
